FAERS Safety Report 4983604-7 (Version None)
Quarter: 2006Q1

REPORT INFORMATION
  Report Type: 
  Country: None (occurrence: None)
  Receive Date: 20060227
  Receipt Date: 20050509
  Transmission Date: 20060701
  Serious: Yes (Life-Threatening, Hospitalization, Disabling)
  Sender: FDA-Public Use
  Company Number: WAES 0505USA01096

PATIENT
  Sex: Male
  Weight: 81.6475 kg

DRUGS (3)
  1. ZOCOR [Suspect]
     Indication: BLOOD TRIGLYCERIDES INCREASED
     Dosage: SEE IMAGE
     Route: 048
  2. ZOCOR [Suspect]
     Indication: LIPIDS INCREASED
     Dosage: SEE IMAGE
     Route: 048
  3. LOPID [Concomitant]

REACTIONS (2)
  - RENAL FAILURE [None]
  - RHABDOMYOLYSIS [None]
